FAERS Safety Report 7874137-9 (Version None)
Quarter: 2011Q4

REPORT INFORMATION
  Report Type: 
  Country: None (occurrence: None)
  Receive Date: 20111030
  Receipt Date: 20110516
  Transmission Date: 20120403
  Serious: No
  Sender: FDA-Public Use
  Company Number: US-AMGEN-USASP2011025269

PATIENT
  Sex: Female

DRUGS (2)
  1. ENBREL [Suspect]
     Indication: RHEUMATOID ARTHRITIS
     Dosage: 50 MG, QWK
     Dates: start: 20110320
  2. PREDNISONE [Concomitant]

REACTIONS (5)
  - MUSCULAR WEAKNESS [None]
  - ABDOMINAL DISTENSION [None]
  - ALOPECIA [None]
  - DIZZINESS [None]
  - INJECTION SITE PAIN [None]
